FAERS Safety Report 8454715-9 (Version None)
Quarter: 2012Q2

REPORT INFORMATION
  Report Type: 
  Country: None (occurrence: None)
  Receive Date: 20120615
  Receipt Date: 20120524
  Transmission Date: 20120825
  Serious: Yes (Death)
  Sender: FDA-Public Use
  Company Number: 2012-266

PATIENT
  Age: 87 Year
  Sex: Female

DRUGS (1)
  1. FAZACLO ODT [Suspect]
     Dosage: 12.5 MG, QD, ORAL
     Route: 048
     Dates: start: 20120131, end: 20120418

REACTIONS (1)
  - DEMENTIA ALZHEIMER'S TYPE [None]
